FAERS Safety Report 16334739 (Version 8)
Quarter: 2020Q2

REPORT INFORMATION
  Report Type: Report from Study
  Country: US (occurrence: US)
  Receive Date: 20190520
  Receipt Date: 20200526
  Transmission Date: 20200713
  Serious: Yes (Hospitalization, Other)
  Sender: FDA-Public Use
  Company Number: US-ACTELION-A-NJ2019-184886

PATIENT
  Age: 67 Year
  Sex: Female
  Weight: 128.8 kg

DRUGS (4)
  1. REMODULIN [Suspect]
     Active Substance: TREPROSTINIL
     Indication: PRODUCT USED FOR UNKNOWN INDICATION
     Dosage: 60 NG/KG, PER MIN
     Route: 065
     Dates: start: 2006
  2. COUMADIN [Concomitant]
     Active Substance: WARFARIN SODIUM
  3. TRACLEER [Suspect]
     Active Substance: BOSENTAN
     Indication: PULMONARY ARTERIAL HYPERTENSION
     Dosage: 125 MG, BID
     Route: 048
     Dates: start: 20070122
  4. TRACLEER [Suspect]
     Active Substance: BOSENTAN
     Dosage: 125 MG, BID
     Route: 048

REACTIONS (16)
  - Dyspnoea [Unknown]
  - Muscle spasms [Unknown]
  - Headache [Unknown]
  - Pyrexia [Unknown]
  - Catheter management [Unknown]
  - Influenza like illness [Unknown]
  - Chills [Unknown]
  - Device leakage [Unknown]
  - Malaise [Unknown]
  - Pulmonary hypertension [Unknown]
  - Influenza [Unknown]
  - Basal cell carcinoma [Unknown]
  - Fluid overload [Recovered/Resolved]
  - Oedema [Unknown]
  - Nasal congestion [Unknown]
  - Abdominal discomfort [Unknown]

NARRATIVE: CASE EVENT DATE: 20181204
